FAERS Safety Report 21189808 (Version 1)
Quarter: 2022Q3

REPORT INFORMATION
  Report Type: Spontaneous
  Country: FR (occurrence: FR)
  Receive Date: 20220809
  Receipt Date: 20220809
  Transmission Date: 20221027
  Serious: Yes (Disabling, Other)
  Sender: FDA-Public Use
  Company Number: FR-NOVARTISPH-NVSC2022FR176675

PATIENT
  Sex: Male

DRUGS (3)
  1. ALPRAZOLAM [Suspect]
     Active Substance: ALPRAZOLAM
     Indication: Foetal exposure during pregnancy
     Dosage: MATERNAL EXPOSURE DURING PREGNANCY: 2 MG, QD (0.5 MG, QID)
     Route: 064
  2. ZYPREXA [Suspect]
     Active Substance: OLANZAPINE
     Indication: Foetal exposure during pregnancy
     Dosage: MATERNAL EXPOSURE DURING PREGNANCY: UNKNOWN DOSE
     Route: 064
  3. TIANEPTINE [Suspect]
     Active Substance: TIANEPTINE
     Indication: Foetal exposure during pregnancy
     Dosage: MATERNAL EXPOSURE DURING PREGNANCY: UNK, QD (12.5 UNK, TID)
     Route: 064

REACTIONS (8)
  - Motor dysfunction [Recovered/Resolved]
  - Psychotic disorder [Not Recovered/Not Resolved]
  - Cerebral atrophy [Not Recovered/Not Resolved]
  - Hypertonia [Recovered/Resolved]
  - Cognitive disorder [Not Recovered/Not Resolved]
  - Feeding disorder [Recovered/Resolved]
  - Photosensitivity reaction [Unknown]
  - Tremor neonatal [Recovered/Resolved]

NARRATIVE: CASE EVENT DATE: 20120203
